FAERS Safety Report 9522310 (Version 2)
Quarter: 2013Q3

REPORT INFORMATION
  Report Type: Report from Study
  Country: FR (occurrence: FR)
  Receive Date: 20130913
  Receipt Date: 20130917
  Transmission Date: 20140515
  Serious: Yes (Hospitalization)
  Sender: FDA-Public Use
  Company Number: FR-ROCHE-1273052

PATIENT
  Sex: Female

DRUGS (4)
  1. BEVACIZUMAB [Suspect]
     Indication: COLORECTAL CANCER METASTATIC
     Dosage: LAST DOSE ADMINISTERED WAS OF 300 MG
     Route: 065
  2. 5-FLUOROURACIL [Suspect]
     Indication: COLORECTAL CANCER METASTATIC
     Dosage: LAST DOSE WAS OF 650 MG IN BOLUS
     Route: 040
  3. 5-FLUOROURACIL [Suspect]
     Route: 065
  4. ELVORINE [Suspect]
     Indication: COLORECTAL CANCER METASTATIC
     Dosage: LAST DOSE ADMINISTERED WAS OF 320 MG;
     Route: 065

REACTIONS (2)
  - General physical health deterioration [Recovered/Resolved]
  - Anaemia [Recovered/Resolved]
